FAERS Safety Report 4633551-5 (Version None)
Quarter: 2005Q2

REPORT INFORMATION
  Report Type: 
  Country: None (occurrence: None)
  Receive Date: 20050331
  Receipt Date: 20041225
  Transmission Date: 20051028
  Serious: Yes (Disabling)
  Sender: FDA-Public Use
  Company Number: 200416331BCC

PATIENT
  Age: 34 Year
  Sex: Male
  Weight: 68.0396 kg

DRUGS (1)
  1. ALEVE [Suspect]
     Dosage: 440 MG ONCE ORAL
     Route: 048
     Dates: start: 20041224

REACTIONS (4)
  - ANXIETY [None]
  - FATIGUE [None]
  - HYPOTHYROIDISM [None]
  - PALPITATIONS [None]
